FAERS Safety Report 9743602 (Version 1)
Quarter: 2013Q4

REPORT INFORMATION
  Report Type: Spontaneous
  Country: US (occurrence: US)
  Receive Date: 20131210
  Receipt Date: 20131210
  Transmission Date: 20140711
  Serious: No
  Sender: FDA-Public Use
  Company Number: US-TEVA-383065USA

PATIENT
  Age: 43 Year
  Sex: Female
  Weight: 92.16 kg

DRUGS (3)
  1. PARAGARD 380A [Suspect]
     Indication: CONTRACEPTION
     Route: 015
     Dates: start: 20121228
  2. LABETALOL [Concomitant]
     Indication: HYPERTENSION
     Dosage: 800 MILLIGRAM DAILY;
     Route: 048
     Dates: start: 201211
  3. SYNTHROID [Concomitant]
     Indication: HYPOTHYROIDISM
     Dosage: 50 MICROGRAM DAILY;
     Route: 048

REACTIONS (3)
  - Device expulsion [Not Recovered/Not Resolved]
  - Coital bleeding [Not Recovered/Not Resolved]
  - Dyspareunia [Not Recovered/Not Resolved]
